FAERS Safety Report 7749400-2 (Version None)
Quarter: 2011Q3

REPORT INFORMATION
  Report Type: 
  Country: None (occurrence: None)
  Receive Date: 20110909
  Receipt Date: 20110826
  Transmission Date: 20111222
  Serious: Yes (Other)
  Sender: FDA-Public Use
  Company Number: 2011MA006609

PATIENT
  Age: 40 Year
  Sex: Male

DRUGS (2)
  1. AVODART [Suspect]
     Indication: ALOPECIA
     Dosage: 500 MCG;QD;PO
     Route: 048
     Dates: start: 20080101, end: 20090101
  2. FINASTERIDE [Suspect]
     Indication: ALOPECIA
     Dosage: PO
     Route: 048
     Dates: start: 19980101, end: 20080101

REACTIONS (6)
  - OVERDOSE [None]
  - CUTIS LAXA [None]
  - DYSGEUSIA [None]
  - WRONG TECHNIQUE IN DRUG USAGE PROCESS [None]
  - INTENTIONAL DRUG MISUSE [None]
  - SKIN DISCOLOURATION [None]
